FAERS Safety Report 8072070-3 (Version None)
Quarter: 2012Q1

REPORT INFORMATION
  Report Type: 
  Country: None (occurrence: None)
  Receive Date: 20120126
  Receipt Date: 20120123
  Transmission Date: 20120608
  Serious: Yes (Other)
  Sender: FDA-Public Use
  Company Number: US-AMGEN-USASP2012004630

PATIENT
  Age: 52 Year
  Sex: Female

DRUGS (10)
  1. NEUPOGEN [Suspect]
     Indication: NEUTROPENIA
     Dates: start: 20120101
  2. PREDNISONE [Concomitant]
  3. PERCOCET [Concomitant]
  4. ZOFRAN [Concomitant]
  5. COMPAZINE [Concomitant]
  6. GABAPENTIN [Concomitant]
  7. DECADRON [Concomitant]
  8. OMEPRAZOLE [Concomitant]
  9. EMEND [Concomitant]
  10. ANTINEOPLASTIC AGENTS [Concomitant]
     Indication: OVARIAN CANCER

REACTIONS (4)
  - HYPERSENSITIVITY [None]
  - RASH GENERALISED [None]
  - RASH ERYTHEMATOUS [None]
  - URTICARIA [None]
